FAERS Safety Report 5468762-2 (Version None)
Quarter: 2007Q3

REPORT INFORMATION
  Report Type: 
  Country: None (occurrence: None)
  Receive Date: 20070926
  Receipt Date: 20070914
  Transmission Date: 20080115
  Serious: Yes (Other)
  Sender: FDA-Public Use
  Company Number: US-PFIZER INC-2007078581

PATIENT
  Sex: Female
  Weight: 87.5 kg

DRUGS (5)
  1. CHANTIX [Suspect]
     Indication: SMOKING CESSATION THERAPY
  2. BENTYL [Interacting]
     Indication: GASTRITIS
  3. DETROL LA [Concomitant]
  4. IBUPROFEN [Concomitant]
  5. METOPROLOL [Concomitant]

REACTIONS (2)
  - COLITIS [None]
  - GASTRITIS [None]
